FAERS Safety Report 10884481 (Version 1)
Quarter: 2015Q1

REPORT INFORMATION
  Report Type: Report from Study
  Country: CA (occurrence: CA)
  Receive Date: 20150304
  Receipt Date: 20150304
  Transmission Date: 20150721
  Serious: Yes (Other)
  Sender: FDA-Public Use
  Company Number: CA-JNJFOC-20150218467

PATIENT
  Age: 62 Year
  Sex: Male
  Weight: 82 kg

DRUGS (1)
  1. REMICADE [Suspect]
     Active Substance: INFLIXIMAB
     Indication: PSORIASIS
     Dosage: 73 INFUSIONS TILL NOW
     Route: 042
     Dates: start: 20070425, end: 20150224

REACTIONS (3)
  - Lung neoplasm malignant [Not Recovered/Not Resolved]
  - Inguinal hernia [Not Recovered/Not Resolved]
  - Metastatic lymphoma [Not Recovered/Not Resolved]

NARRATIVE: CASE EVENT DATE: 201502
